FAERS Safety Report 7037723-4 (Version None)
Quarter: 2010Q4

REPORT INFORMATION
  Report Type: 
  Country: None (occurrence: None)
  Receive Date: 20101011
  Receipt Date: 20101001
  Transmission Date: 20110411
  Serious: Yes (Other)
  Sender: FDA-Public Use
  Company Number: CA-MERCK-1010USA00388

PATIENT
  Age: 52 Year
  Sex: Female
  Weight: 59 kg

DRUGS (5)
  1. FOSAMAX [Suspect]
     Route: 048
  2. CALCIUM (UNSPECIFIED) [Concomitant]
     Route: 065
  3. VITAMINS (UNSPECIFIED) [Concomitant]
     Route: 065
  4. PREDNISONE [Suspect]
     Route: 048
  5. SYNTHROID [Suspect]
     Route: 065

REACTIONS (6)
  - EYE PAIN [None]
  - SCLERITIS [None]
  - STRABISMUS [None]
  - ULTRASOUND EYE NORMAL [None]
  - UVEITIS [None]
  - VISION BLURRED [None]
